FAERS Safety Report 24854228 (Version 1)
Quarter: 2025Q1

REPORT INFORMATION
  Report Type: Spontaneous
  Country: CN (occurrence: CN)
  Receive Date: 20250117
  Receipt Date: 20250117
  Transmission Date: 20250408
  Serious: Yes (Hospitalization)
  Sender: ORGANON
  Company Number: CN-ORGANON-O2501CHN001791

PATIENT
  Age: 75 Year
  Sex: Male
  Weight: 64 kg

DRUGS (1)
  1. SINGULAIR [Suspect]
     Active Substance: MONTELUKAST SODIUM
     Indication: Asthma
     Dosage: 10MG, QD, ORAL||
     Route: 048
     Dates: start: 20241219, end: 20241220

REACTIONS (2)
  - Wheezing [Recovering/Resolving]
  - Dyspnoea [Recovering/Resolving]

NARRATIVE: CASE EVENT DATE: 20241220
